FAERS Safety Report 7075177-2 (Version None)
Quarter: 2010Q4

REPORT INFORMATION
  Report Type: 
  Country: None (occurrence: None)
  Receive Date: 20101029
  Receipt Date: 20100521
  Transmission Date: 20110411
  Serious: No
  Sender: FDA-Public Use
  Company Number: US-WYE-H15370910

PATIENT
  Age: 32 Year
  Sex: Female
  Weight: 68.1 kg

DRUGS (1)
  1. ADVIL PM [Suspect]
     Indication: INSOMNIA
     Dosage: 2 CAPLETS
     Route: 048
     Dates: start: 20100520, end: 20100520

REACTIONS (2)
  - HANGOVER [None]
  - HEADACHE [None]
